FAERS Safety Report 4694860-7 (Version None)
Quarter: 2005Q2

REPORT INFORMATION
  Report Type: 
  Country: None (occurrence: None)
  Receive Date: 20050620
  Receipt Date: 20050614
  Transmission Date: 20051028
  Serious: Yes (Hospitalization)
  Sender: FDA-Public Use
  Company Number: US-BRISTOL-MYERS SQUIBB COMPANY-13005533

PATIENT
  Age: 73 Year
  Sex: Male
  Weight: 88 kg

DRUGS (3)
  1. METFORMIN HCL [Suspect]
     Route: 048
     Dates: start: 20040501
  2. METFORMIN HCL XR TABS 500 MG [Suspect]
     Route: 048
     Dates: start: 20050101, end: 20050101
  3. HYDROCHLOROTHIAZIDE [Concomitant]

REACTIONS (4)
  - CARDIAC FAILURE CONGESTIVE [None]
  - FALL [None]
  - FATIGUE [None]
  - MUSCULAR WEAKNESS [None]
